FAERS Safety Report 7264699-7 (Version None)
Quarter: 2011Q1

REPORT INFORMATION
  Report Type: 
  Country: None (occurrence: None)
  Receive Date: 20110131
  Receipt Date: 20110128
  Transmission Date: 20110831
  Serious: No
  Sender: FDA-Public Use
  Company Number: US-PFIZER INC-2011020991

PATIENT
  Sex: Female
  Weight: 58.957 kg

DRUGS (2)
  1. GEODON [Suspect]
     Indication: BIPOLAR DISORDER
     Dosage: 20 MG, 1X/DAY
     Route: 048
     Dates: start: 20110114
  2. CYMBALTA [Concomitant]
     Indication: DEPRESSION
     Dosage: UNK

REACTIONS (2)
  - EATING DISORDER [None]
  - TREMOR [None]
